FAERS Safety Report 11777210 (Version 1)
Quarter: 2015Q4

REPORT INFORMATION
  Report Type: Spontaneous
  Country: US (occurrence: US)
  Receive Date: 20151125
  Receipt Date: 20151125
  Transmission Date: 20160304
  Serious: No
  Sender: FDA-Public Use
  Company Number: US-PFIZER INC-2015399220

PATIENT
  Age: 38 Year
  Sex: Female

DRUGS (1)
  1. EFFEXOR XR [Suspect]
     Active Substance: VENLAFAXINE HYDROCHLORIDE

REACTIONS (7)
  - Feeling hot [Unknown]
  - Cold sweat [Unknown]
  - Malaise [Unknown]
  - Insomnia [Unknown]
  - Energy increased [Unknown]
  - Sleep disorder [Unknown]
  - Palpitations [Unknown]
